FAERS Safety Report 14667731 (Version 5)
Quarter: 2020Q1

REPORT INFORMATION
  Report Type: Spontaneous
  Country: US (occurrence: US)
  Receive Date: 20180322
  Receipt Date: 20200121
  Transmission Date: 20200409
  Serious: No
  Sender: FDA-Public Use
  Company Number: US-PFIZER INC-2018045193

PATIENT
  Age: 41 Year
  Sex: Female

DRUGS (1)
  1. XELJANZ [Suspect]
     Active Substance: TOFACITINIB CITRATE
     Indication: RHEUMATOID ARTHRITIS
     Dosage: 5 MG, 2X/DAY (TABLET BY MOUTH TWICE A DAY)
     Route: 048
     Dates: start: 201607

REACTIONS (3)
  - Sensitivity to weather change [Unknown]
  - Urinary tract infection [Unknown]
  - Oropharyngeal pain [Unknown]
